FAERS Safety Report 7052783-2 (Version None)
Quarter: 2010Q4

REPORT INFORMATION
  Report Type: 
  Country: None (occurrence: None)
  Receive Date: 20101014
  Receipt Date: 20101001
  Transmission Date: 20110411
  Serious: Yes (Hospitalization)
  Sender: FDA-Public Use
  Company Number: US-JNJFOC-20100700806

PATIENT
  Age: 23 Year
  Sex: Male
  Weight: 72 kg

DRUGS (2)
  1. DECITABINE (DECITABINE) LYOPHILIZED POWDER [Suspect]
     Indication: ACUTE MYELOID LEUKAEMIA
     Dosage: 20 MG/M2, INTRAVENOUS ; 20 MG/M2, INTRAVENOUS
     Route: 042
     Dates: start: 20100505, end: 20100509
  2. DECITABINE (DECITABINE) LYOPHILIZED POWDER [Suspect]
     Indication: ACUTE MYELOID LEUKAEMIA
     Dosage: 20 MG/M2, INTRAVENOUS ; 20 MG/M2, INTRAVENOUS
     Route: 042
     Dates: start: 20100706, end: 20100709

REACTIONS (18)
  - ABDOMINAL PAIN [None]
  - ACUTE MYELOID LEUKAEMIA RECURRENT [None]
  - ASTHENIA [None]
  - DECREASED APPETITE [None]
  - DIARRHOEA [None]
  - DIVERTICULUM [None]
  - DYSURIA [None]
  - FATIGUE [None]
  - GASTRITIS [None]
  - HEADACHE [None]
  - LETHARGY [None]
  - MALAISE [None]
  - NAUSEA [None]
  - NEUTROPENIA [None]
  - NIGHT SWEATS [None]
  - PROCTALGIA [None]
  - PYREXIA [None]
  - VOMITING [None]
